FAERS Safety Report 23708154 (Version 3)
Quarter: 2024Q3

REPORT INFORMATION
  Report Type: Report from Study
  Country: GB (occurrence: GB)
  Receive Date: 20240404
  Receipt Date: 20240903
  Transmission Date: 20241016
  Serious: Yes (Other)
  Sender: SANDOZ
  Company Number: GB-SANDOZ-SDZ2024GB035371

PATIENT
  Sex: Female

DRUGS (1)
  1. OMNITROPE [Suspect]
     Active Substance: SOMATROPIN
     Indication: Hypopituitarism
     Dosage: 0.40 MG, QD
     Route: 058
     Dates: start: 20201118

REACTIONS (9)
  - Hypopituitarism [Unknown]
  - Condition aggravated [Unknown]
  - Somnolence [Unknown]
  - Depressed mood [Unknown]
  - Asthenia [Unknown]
  - Anxiety [Unknown]
  - Fatigue [Unknown]
  - Product dose omission issue [Unknown]
  - Product availability issue [Unknown]
